FAERS Safety Report 4908206-X (Version None)
Quarter: 2006Q1

REPORT INFORMATION
  Report Type: 
  Country: None (occurrence: None)
  Receive Date: 20060210
  Receipt Date: 20050505
  Transmission Date: 20060701
  Serious: Yes (Hospitalization)
  Sender: FDA-Public Use
  Company Number: US-MERCK-0505USA00742

PATIENT
  Age: 60 Year
  Sex: Female
  Weight: 85 kg

DRUGS (2)
  1. VIOXX [Suspect]
     Indication: ARTHRITIS
     Route: 048
     Dates: start: 20011123, end: 20040503
  2. VIOXX [Suspect]
     Route: 048
     Dates: start: 20011123, end: 20040503

REACTIONS (3)
  - CEREBROVASCULAR ACCIDENT [None]
  - OBESITY [None]
  - TRANSIENT ISCHAEMIC ATTACK [None]
